FAERS Safety Report 18188182 (Version 33)
Quarter: 2025Q2

REPORT INFORMATION
  Report Type: Report from Study
  Country: US (occurrence: US)
  Receive Date: 20200824
  Receipt Date: 20250625
  Transmission Date: 20250716
  Serious: Yes (Hospitalization, Other)
  Sender: TAKEDA
  Company Number: US-SHIRE-US202026833

PATIENT
  Age: 51 Year
  Sex: Female
  Weight: 69 kg

DRUGS (36)
  1. HUMAN IMMUNOGLOBULIN G [Suspect]
     Active Substance: HUMAN IMMUNOGLOBULIN G
     Indication: Immune system disorder
     Dosage: 12 GRAM, 1/WEEK
     Dates: start: 20191028
  2. HUMAN IMMUNOGLOBULIN G [Suspect]
     Active Substance: HUMAN IMMUNOGLOBULIN G
     Indication: Hypergammaglobulinaemia
     Dosage: 11 GRAM, 1/WEEK
  3. HUMAN IMMUNOGLOBULIN G [Suspect]
     Active Substance: HUMAN IMMUNOGLOBULIN G
     Dosage: 12 GRAM, 1/WEEK
  4. HUMAN IMMUNOGLOBULIN G [Suspect]
     Active Substance: HUMAN IMMUNOGLOBULIN G
     Dosage: 12 GRAM, 1/WEEK
  5. GAMMAGARD LIQUID [Suspect]
     Active Substance: HUMAN IMMUNOGLOBULIN G
     Indication: Immune system disorder
     Dosage: 40 GRAM, Q4WEEKS
     Dates: start: 20241202
  6. GAMMAGARD LIQUID [Suspect]
     Active Substance: HUMAN IMMUNOGLOBULIN G
     Indication: Hypergammaglobulinaemia
  7. ACETAMINOPHEN [Concomitant]
     Active Substance: ACETAMINOPHEN
  8. EPINEPHRINE [Concomitant]
     Active Substance: EPINEPHRINE
  9. ASCORBIC ACID\ZINC [Concomitant]
     Active Substance: ASCORBIC ACID\ZINC
  10. Lozenger t [Concomitant]
  11. IMIPRAMINE HYDROCHLORIDE [Concomitant]
     Active Substance: IMIPRAMINE HYDROCHLORIDE
  12. TRAZODONE HCL [Concomitant]
     Active Substance: TRAZODONE HYDROCHLORIDE
  13. SODIUM CHLORIDE [Concomitant]
     Active Substance: SODIUM CHLORIDE
  14. VITAMIN D3 [Concomitant]
     Active Substance: CHOLECALCIFEROL
  15. LYRICA [Concomitant]
     Active Substance: PREGABALIN
  16. VITAMINS [Concomitant]
     Active Substance: VITAMINS
  17. NATTOKINASE [Concomitant]
     Active Substance: NATTOKINASE
  18. LIDOCAINE [Concomitant]
     Active Substance: LIDOCAINE
  19. DIAZEPAM [Concomitant]
     Active Substance: DIAZEPAM
  20. HYALURONIC ACID [Concomitant]
     Active Substance: HYALURONIC ACID
  21. Omega [Concomitant]
  22. PROMETHAZINE HYDROCHLORIDE [Concomitant]
     Active Substance: PROMETHAZINE HYDROCHLORIDE
  23. DIPHENHYDRAMINE [Concomitant]
     Active Substance: DIPHENHYDRAMINE
  24. DICYCLOMINE HYDROCHLORIDE [Concomitant]
     Active Substance: DICYCLOMINE HYDROCHLORIDE
  25. NALTREXONE HYDROCHLORIDE [Concomitant]
     Active Substance: NALTREXONE HYDROCHLORIDE
  26. Lmx [Concomitant]
  27. VITAMIN B COMPLEX [Concomitant]
     Active Substance: CYANOCOBALAMIN\DEXPANTHENOL\NIACINAMIDE\PYRIDOXINE HYDROCHLORIDE\RIBOFLAVIN 5^-PHOSPHATE SODIUM\THIA
  28. DIPHENHYDRAMINE HYDROCHLORIDE [Concomitant]
     Active Substance: DIPHENHYDRAMINE HYDROCHLORIDE
  29. Vitamin b complex w c [Concomitant]
  30. VITAMIN B [Concomitant]
     Active Substance: VITAMIN B
  31. MAGNESIUM [Concomitant]
     Active Substance: MAGNESIUM
  32. VITAMIN C [Concomitant]
     Active Substance: ASCORBIC ACID
  33. SELENIUM [Concomitant]
     Active Substance: SELENIUM
  34. VITAMIN K [Concomitant]
     Active Substance: PHYTONADIONE
  35. ACETAMINOPHEN\HYDROCODONE [Concomitant]
     Active Substance: ACETAMINOPHEN\HYDROCODONE
  36. TRAMADOL HCL [Concomitant]
     Active Substance: TRAMADOL HYDROCHLORIDE

REACTIONS (41)
  - Mental disorder [Unknown]
  - Norovirus infection [Unknown]
  - Gastrointestinal infection [Unknown]
  - Clostridium difficile infection [Unknown]
  - General physical health deterioration [Unknown]
  - Narcolepsy [Unknown]
  - Thrombosis [Recovered/Resolved]
  - Escherichia infection [Not Recovered/Not Resolved]
  - Urinary tract infection [Unknown]
  - Injury [Unknown]
  - Gastrointestinal disorder [Not Recovered/Not Resolved]
  - Illness [Unknown]
  - Infection [Unknown]
  - Dermatitis contact [Recovered/Resolved]
  - Peripheral venous disease [Unknown]
  - COVID-19 [Recovering/Resolving]
  - Food poisoning [Unknown]
  - Infusion site scar [Unknown]
  - Menopause [Unknown]
  - Respiratory tract infection viral [Unknown]
  - Respiratory tract infection [Unknown]
  - Post procedural complication [Recovered/Resolved]
  - Infusion related reaction [Unknown]
  - Inappropriate schedule of product administration [Unknown]
  - Product dose omission issue [Unknown]
  - Gastric infection [Unknown]
  - Infusion site mass [Unknown]
  - Feeling abnormal [Unknown]
  - Hot flush [Unknown]
  - Burning sensation [Recovered/Resolved]
  - Malaise [Unknown]
  - Rash [Recovered/Resolved]
  - Pain [Recovered/Resolved]
  - Infusion site discomfort [Unknown]
  - Pyrexia [Unknown]
  - Fatigue [Unknown]
  - Arthralgia [Unknown]
  - Urticaria [Recovered/Resolved]
  - Pruritus [Recovered/Resolved]
  - Nausea [Unknown]
  - Headache [Unknown]

NARRATIVE: CASE EVENT DATE: 20230331
